FAERS Safety Report 18833421 (Version 1)
Quarter: 2021Q1

REPORT INFORMATION
  Report Type: Spontaneous
  Country: US (occurrence: US)
  Receive Date: 20210202
  Receipt Date: 20210202
  Transmission Date: 20210419
  Serious: Yes (Hospitalization)
  Sender: FDA-Public Use
  Company Number: None

PATIENT
  Age: 69 Year
  Sex: Male

DRUGS (1)
  1. METOLAZONE (METOLAZONE 5MG TAB) [Suspect]
     Active Substance: METOLAZONE
     Indication: END STAGE RENAL DISEASE
     Dosage: OTHER
     Route: 048
     Dates: start: 20200122, end: 20200213

REACTIONS (2)
  - Thrombocytopenia [None]
  - Acute kidney injury [None]

NARRATIVE: CASE EVENT DATE: 20200213
